FAERS Safety Report 25013870 (Version 1)
Quarter: 2025Q1

REPORT INFORMATION
  Report Type: Spontaneous
  Country: PL (occurrence: PL)
  Receive Date: 20250226
  Receipt Date: 20250226
  Transmission Date: 20250409
  Serious: Yes (Other)
  Sender: OTSUKA
  Company Number: PL-LESVI-2025000266

PATIENT
  Age: 31 Year
  Sex: Female

DRUGS (10)
  1. ARIPIPRAZOLE [Suspect]
     Active Substance: ARIPIPRAZOLE
     Indication: Schizophrenia
     Route: 065
  2. ARIPIPRAZOLE [Suspect]
     Active Substance: ARIPIPRAZOLE
     Dosage: 30 MG, QD
     Route: 065
  3. ARIPIPRAZOLE [Suspect]
     Active Substance: ARIPIPRAZOLE
     Dosage: 15 MG, QD
     Route: 065
  4. ARIPIPRAZOLE [Suspect]
     Active Substance: ARIPIPRAZOLE
     Indication: Schizophrenia
     Route: 065
  5. LAMOTRIGINE [Suspect]
     Active Substance: LAMOTRIGINE
     Indication: Schizophrenia
     Dosage: 100 MG, QD
     Route: 065
  6. RISPERIDONE [Suspect]
     Active Substance: RISPERIDONE
     Indication: Schizophrenia
     Route: 065
  7. RISPERIDONE [Suspect]
     Active Substance: RISPERIDONE
     Dosage: 6 MG, QD
     Route: 065
  8. LEVOMEPROMAZINE [Suspect]
     Active Substance: LEVOMEPROMAZINE
     Indication: Schizophrenia
     Dosage: 50 MG, QD
     Route: 065
  9. CARIPRAZINE [Suspect]
     Active Substance: CARIPRAZINE
     Indication: Schizophrenia
     Dosage: 1.5 MG, QD
     Route: 065
  10. CARIPRAZINE [Suspect]
     Active Substance: CARIPRAZINE
     Dosage: 3 MG, QD
     Route: 065

REACTIONS (8)
  - Hallucination [Recovered/Resolved]
  - Apathy [Recovered/Resolved]
  - Asthenia [Recovered/Resolved]
  - Lethargy [Recovered/Resolved]
  - Somnolence [Recovered/Resolved]
  - Weight increased [Recovered/Resolved]
  - Treatment noncompliance [Unknown]
  - Drug ineffective [Unknown]
